FAERS Safety Report 25504532 (Version 1)
Quarter: 2025Q3

REPORT INFORMATION
  Report Type: Report from Study
  Country: US (occurrence: US)
  Receive Date: 20250702
  Receipt Date: 20250702
  Transmission Date: 20251020
  Serious: Yes (Other)
  Sender: ACADIA PHARMACEUTICALS
  Company Number: US-ACADIA PHARMACEUTICALS INC.-ACA-2025-PIM-007536

PATIENT
  Sex: Male

DRUGS (24)
  1. NUPLAZID [Suspect]
     Active Substance: PIMAVANSERIN TARTRATE
     Indication: Parkinson^s disease psychosis
     Dosage: 34 MILLIGRAM, QD
     Route: 048
  2. NUPLAZID [Suspect]
     Active Substance: PIMAVANSERIN TARTRATE
     Indication: Hallucination
  3. NUPLAZID [Suspect]
     Active Substance: PIMAVANSERIN TARTRATE
     Indication: Parkinson^s disease
  4. SINEMET [Concomitant]
     Active Substance: CARBIDOPA\LEVODOPA
     Indication: Musculoskeletal stiffness
  5. COMTAN [Concomitant]
     Active Substance: ENTACAPONE
     Dosage: 200 MILLIGRAM, TID/ TAKE ONE TABLET (200 MG TOTAL) BY MOUTH IN THE MORNING AND ONE TABLET (200 MG TO
  6. SELEGILINE [Concomitant]
     Active Substance: SELEGILINE
  7. EXELON [Concomitant]
     Active Substance: RIVASTIGMINE TARTRATE
  8. MELATONIN [Concomitant]
     Active Substance: MELATONIN
     Dosage: 5 MILLIGRAM, QD
  9. SEROQUEL [Concomitant]
     Active Substance: QUETIAPINE FUMARATE
     Indication: Hallucination
     Dosage: 25 MILLIGRAM, QD, TAKE 1 PILL PO Q6PM AND QHS
     Route: 048
  10. SEROQUEL [Concomitant]
     Active Substance: QUETIAPINE FUMARATE
     Dosage: 37.5 MILLIGRAM, QD
  11. SEROQUEL [Concomitant]
     Active Substance: QUETIAPINE FUMARATE
     Dosage: 12.5 MILLIGRAM, QD 6 PM
  12. NEURONTIN [Concomitant]
     Active Substance: GABAPENTIN
     Indication: Neuralgia
     Dosage: TAKE 1 CAPSULE BY MOUT IN TH EMORNING AND ONE CAPSULE AT NOON AND 1 BEFORE BEDTIME
     Route: 048
  13. LIPITOR [Concomitant]
     Active Substance: ATORVASTATIN CALCIUM
     Route: 048
  14. ASPIRIN [Concomitant]
     Active Substance: ASPIRIN
     Dosage: UNK, QD
     Route: 048
  15. COREG [Concomitant]
     Active Substance: CARVEDILOL
     Route: 048
  16. CARDURA [Concomitant]
     Active Substance: DOXAZOSIN MESYLATE
     Dosage: 2 MILLIGRAM, QD
     Route: 048
  17. PROVIGIL [Concomitant]
     Active Substance: MODAFINIL
     Dosage: 100 MILLIGRAM, BID/ TAKE ONE TABLET (100 MG TOTAL) BY MOUTH IN THE MORNING AND ONE TABLET (100 MG TO
     Route: 048
  18. ELDEPRYL [Concomitant]
     Active Substance: SELEGILINE HYDROCHLORIDE
     Dosage: 5 MILLIGRAM, BID/ TAKE ONE CAPSULE BY MOUTH TWO TIMES A DAY BEFORE A MEAL
     Route: 048
  19. TAMSULOSIN HYDROCHLORIDE [Concomitant]
     Active Substance: TAMSULOSIN HYDROCHLORIDE
     Dosage: 0.4 MILLIGRAM, BID
     Route: 048
  20. MICARDIS [Concomitant]
     Active Substance: TELMISARTAN
     Dosage: 40 MILLIGRAM, QD
     Route: 048
  21. VITAMIN D3 [Concomitant]
     Active Substance: CHOLECALCIFEROL
     Dosage: TAKE 1 CAPSULE  BY MOUTH ONCE A WEEK
     Route: 048
  22. LIDEX [Concomitant]
     Active Substance: FLUOCINONIDE
  23. BACTROBAN [Concomitant]
     Active Substance: MUPIROCIN CALCIUM
  24. VITAMIN D2 [Concomitant]
     Active Substance: ERGOCALCIFEROL

REACTIONS (11)
  - Hallucination [Unknown]
  - Dizziness [Unknown]
  - Dysphonia [Unknown]
  - Bradykinesia [Unknown]
  - Reduced facial expression [Unknown]
  - Screaming [Unknown]
  - Back pain [Unknown]
  - Rapid eye movement sleep behaviour disorder [Unknown]
  - Memory impairment [Unknown]
  - Aggression [Unknown]
  - Gait disturbance [Unknown]
